FAERS Safety Report 7075400-4 (Version None)
Quarter: 2010Q4

REPORT INFORMATION
  Report Type: 
  Country: None (occurrence: None)
  Receive Date: 20101030
  Receipt Date: 20100901
  Transmission Date: 20110411
  Serious: No
  Sender: FDA-Public Use
  Company Number: US-WYE-H17284010

PATIENT
  Age: 16 Year
  Sex: Male
  Weight: 56.75 kg

DRUGS (1)
  1. ALAVERT [Suspect]
     Indication: HYPERSENSITIVITY
     Route: 048
     Dates: start: 20100801

REACTIONS (1)
  - APHTHOUS STOMATITIS [None]
